FAERS Safety Report 7175752-0 (Version None)
Quarter: 2010Q4

REPORT INFORMATION
  Report Type: 
  Country: None (occurrence: None)
  Receive Date: 20101220
  Receipt Date: 20100402
  Transmission Date: 20110411
  Serious: Yes (Other)
  Sender: FDA-Public Use
  Company Number: US-AMGEN-QUU403407

PATIENT

DRUGS (9)
  1. ENBREL [Suspect]
     Indication: RHEUMATOID ARTHRITIS
     Dosage: UNK UNK, UNK
     Dates: start: 20040615
  2. ZOLPIDEM TARTRATE [Concomitant]
  3. CELECOXIB [Concomitant]
  4. MIRTAZAPINE [Concomitant]
  5. AMLODIPINE [Concomitant]
  6. METHOTREXATE [Concomitant]
  7. LORAZEPAM [Concomitant]
  8. FOLIC ACID [Concomitant]
  9. ESOMEPRAZOLE MAGNESIUM [Concomitant]

REACTIONS (1)
  - BREAST CANCER [None]
